FAERS Safety Report 23646587 (Version 1)
Quarter: 2024Q1

REPORT INFORMATION
  Report Type: Spontaneous
  Country: MK (occurrence: MK)
  Receive Date: 20240319
  Receipt Date: 20240319
  Transmission Date: 20240409
  Serious: Yes (Life-Threatening, Hospitalization)
  Sender: FDA-Public Use
  Company Number: MK-BIOGEN-2024BI01255525

PATIENT
  Age: 11 Month
  Sex: Male

DRUGS (1)
  1. SPINRAZA [Suspect]
     Active Substance: NUSINERSEN
     Indication: Spinal muscular atrophy
     Dosage: MAINTENANCE DOSE EVERY 4 MONTHS, RECENT ADMINISTRATION ON 01.03.2024
     Route: 050

REACTIONS (4)
  - Cardiac arrest [Unknown]
  - Seizure [Unknown]
  - Brain death [Unknown]
  - Pneumonia [Unknown]

NARRATIVE: CASE EVENT DATE: 20240101
